FAERS Safety Report 5456526-5 (Version None)
Quarter: 2007Q3

REPORT INFORMATION
  Report Type: 
  Country: None (occurrence: None)
  Receive Date: 20070918
  Receipt Date: 20070912
  Transmission Date: 20080115
  Serious: Yes (Hospitalization)
  Sender: FDA-Public Use
  Company Number: A0669192A

PATIENT
  Age: 51 Year
  Sex: Female

DRUGS (7)
  1. TYKERB [Suspect]
     Indication: BREAST CANCER
     Dosage: 1250MG PER DAY
     Route: 048
     Dates: start: 20070426
  2. XELODA [Concomitant]
  3. ALLEGRA [Concomitant]
  4. PREVACID [Concomitant]
  5. HYDROCODONE [Concomitant]
  6. RELIV [Concomitant]
  7. AREDIA [Concomitant]

REACTIONS (7)
  - CERVICAL DYSPLASIA [None]
  - CERVIX CARCINOMA [None]
  - HYDRONEPHROSIS [None]
  - ILL-DEFINED DISORDER [None]
  - METASTASES TO LIVER [None]
  - METASTATIC NEOPLASM [None]
  - RENAL FAILURE ACUTE [None]
